APPROVED DRUG PRODUCT: TRAMADOL HYDROCHLORIDE
Active Ingredient: TRAMADOL HYDROCHLORIDE
Strength: 200MG
Dosage Form/Route: TABLET, EXTENDED RELEASE;ORAL
Application: A091609 | Product #002
Applicant: ACTAVIS ELIZABETH LLC
Approved: Jun 27, 2012 | RLD: No | RS: No | Type: DISCN